FAERS Safety Report 8720871 (Version 3)
Quarter: 2012Q4

REPORT INFORMATION
  Report Type: 
  Country: US (occurrence: US)
  Receive Date: 20120813
  Receipt Date: 20121018
  Transmission Date: 20130627
  Serious: Yes (Other)
  Sender: FDA-Public Use
  Company Number: US-GLAXOSMITHKLINE-A0988789A

PATIENT
  Age: 59 Year
  Sex: Male

DRUGS (7)
  1. ADVAIR [Suspect]
     Indication: ASTHMA
     Dosage: 1PUFF Twice per day
     Route: 055
     Dates: start: 2007
  2. SIMVASTATIN [Concomitant]
  3. NASOCORT [Concomitant]
  4. ASPIRIN [Concomitant]
  5. MULTIVITAMIN [Concomitant]
  6. FISH OIL [Concomitant]
  7. PROAIR HFA [Concomitant]

REACTIONS (5)
  - Asthma [Not Recovered/Not Resolved]
  - Throat irritation [Recovered/Resolved]
  - Drug ineffective [Unknown]
  - Product quality issue [Unknown]
  - Incorrect product storage [Unknown]
